FAERS Safety Report 8048212-2 (Version None)
Quarter: 2012Q1

REPORT INFORMATION
  Report Type: 
  Country: None (occurrence: None)
  Receive Date: 20120117
  Receipt Date: 20120116
  Transmission Date: 20120608
  Serious: Yes (Disabling)
  Sender: FDA-Public Use
  Company Number: DE-JNJFOC-20120105346

PATIENT
  Age: 40 Year
  Sex: Female

DRUGS (1)
  1. LEVOFLOXACIN [Suspect]
     Indication: PRODUCT USED FOR UNKNOWN INDICATION
     Route: 048
     Dates: start: 20110304, end: 20110306

REACTIONS (6)
  - HEPATIC STEATOSIS [None]
  - DYSPNOEA [None]
  - OSTEOCHONDROSIS [None]
  - TENDONITIS [None]
  - TINNITUS [None]
  - TENDON DISORDER [None]
